FAERS Safety Report 9994950 (Version 2)
Quarter: 2014Q3

REPORT INFORMATION
  Report Type: Spontaneous
  Country: US (occurrence: US)
  Receive Date: 20140311
  Receipt Date: 20140903
  Transmission Date: 20150326
  Serious: Yes (Hospitalization)
  Sender: FDA-Public Use
  Company Number: US-BAYER-2014-036401

PATIENT
  Age: 29 Year
  Sex: Female
  Weight: 90.7 kg

DRUGS (4)
  1. CELEBREX [Concomitant]
     Active Substance: CELECOXIB
     Dosage: AS NEEDED
  2. TUSSI-BID [DEXTROMETHORPHAN HYDROBROMIDE,GUAIFENESIN] [Concomitant]
     Dosage: I TABLET AS NEEDED
     Route: 048
  3. ZITHROMAX [Concomitant]
     Active Substance: AZITHROMYCIN DIHYDRATE
     Dosage: 250 MG, UNK
  4. YASMIN [Suspect]
     Active Substance: DROSPIRENONE\ETHINYL ESTRADIOL
     Indication: CONTRACEPTION
     Dosage: UNK
     Dates: start: 200410

REACTIONS (9)
  - Anxiety [None]
  - Abdominal pain [None]
  - General physical health deterioration [None]
  - Peripheral swelling [None]
  - Deep vein thrombosis [None]
  - Pain [None]
  - Injury [None]
  - Emotional distress [None]
  - Pain in extremity [None]

NARRATIVE: CASE EVENT DATE: 200411
